FAERS Safety Report 7998596-6 (Version None)
Quarter: 2011Q4

REPORT INFORMATION
  Report Type: 
  Country: None (occurrence: None)
  Receive Date: 20111221
  Receipt Date: 20111212
  Transmission Date: 20120403
  Serious: Yes (Hospitalization, Other)
  Sender: FDA-Public Use
  Company Number: US-BAYER-2011-006764

PATIENT
  Age: 41 Year
  Sex: Female
  Weight: 70.295 kg

DRUGS (5)
  1. ESTRACE [Concomitant]
     Indication: HYSTERECTOMY
  2. YASMIN [Suspect]
     Indication: PREMENSTRUAL SYNDROME
     Dosage: UNK
     Dates: start: 20030101, end: 20050101
  3. CITALOPRAM [Concomitant]
     Indication: HYSTERECTOMY
  4. ZOLOFT [Concomitant]
     Route: 048
  5. YASMIN [Suspect]

REACTIONS (10)
  - PSYCHOLOGICAL TRAUMA [None]
  - HYSTERECTOMY [None]
  - PAIN [None]
  - ABDOMINAL PAIN UPPER [None]
  - CHOLECYSTECTOMY [None]
  - SEXUAL DYSFUNCTION [None]
  - EMOTIONAL DISTRESS [None]
  - ANXIETY [None]
  - CHOLECYSTITIS ACUTE [None]
  - INJURY [None]
